FAERS Safety Report 14714478 (Version 1)
Quarter: 2018Q2

REPORT INFORMATION
  Report Type: Spontaneous
  Country: US (occurrence: US)
  Receive Date: 20180404
  Receipt Date: 20180404
  Transmission Date: 20180711
  Serious: No
  Sender: FDA-Public Use
  Company Number: US-GLAXOSMITHKLINE-US2018055977

PATIENT
  Sex: Male

DRUGS (1)
  1. BACTROBAN [Suspect]
     Active Substance: MUPIROCIN\MUPIROCIN CALCIUM
     Route: 045

REACTIONS (4)
  - Drug prescribing error [Unknown]
  - Incorrect route of drug administration [Unknown]
  - Product preparation error [Unknown]
  - Wrong technique in product usage process [Unknown]
